FAERS Safety Report 9322304 (Version 2)
Quarter: 2013Q2

REPORT INFORMATION
  Report Type: Report from Study
  Country: FR (occurrence: FR)
  Receive Date: 20130531
  Receipt Date: 20130608
  Transmission Date: 20140414
  Serious: Yes (Death)
  Sender: FDA-Public Use
  Company Number: FR-AMGEN-FRANI2013038535

PATIENT
  Age: 77 Year
  Sex: Male

DRUGS (12)
  1. DARBEPOETIN ALFA [Suspect]
     Indication: ANAEMIA
     Dosage: UNK UNK, QWK
     Route: 058
     Dates: start: 20130410, end: 20130424
  2. OSLIF [Concomitant]
     Dosage: UNK
     Route: 048
     Dates: start: 201301
  3. DOLIPRANE [Concomitant]
     Dosage: UNK UNK, AS NECESSARY
     Route: 048
     Dates: start: 20130208
  4. KARDEGIC [Concomitant]
     Dosage: UNK
     Route: 048
     Dates: start: 20130122
  5. ATENOLOL [Concomitant]
     Dosage: UNK
     Route: 048
  6. TAHOR [Concomitant]
     Dosage: UNK
     Route: 048
  7. ALDACTONE [Concomitant]
     Dosage: UNK
     Route: 048
  8. COVERAM [Concomitant]
     Dosage: UNK
     Route: 048
  9. LASILIX [Concomitant]
     Dosage: UNK
     Route: 048
  10. STAGID [Concomitant]
     Dosage: UNK
     Route: 048
  11. SPECIAFOLDINE [Concomitant]
     Dosage: UNK
     Route: 048
     Dates: start: 20130307
  12. MECIR [Concomitant]
     Dosage: 0.4 MG, UNK
     Route: 048

REACTIONS (1)
  - Cardiac arrest [Fatal]
